FAERS Safety Report 5110323-9 (Version None)
Quarter: 2006Q3

REPORT INFORMATION
  Report Type: 
  Country: None (occurrence: None)
  Receive Date: 20060921
  Receipt Date: 20060526
  Transmission Date: 20061208
  Serious: No
  Sender: FDA-Public Use
  Company Number: US-AVENTIS-200614842US

PATIENT
  Sex: Male

DRUGS (3)
  1. LANTUS [Suspect]
  2. OPTICLIK (INSULIN INJECTION PEN) [Suspect]
  3. HUMALOG [Concomitant]
     Dosage: DOSE: AT MEALTIME

REACTIONS (3)
  - DEVICE LEAKAGE [None]
  - OBESITY [None]
  - PHARMACEUTICAL PRODUCT COMPLAINT [None]
